FAERS Safety Report 13990476 (Version 2)
Quarter: 2017Q4

REPORT INFORMATION
  Report Type: Spontaneous
  Country: US (occurrence: US)
  Receive Date: 20170920
  Receipt Date: 20171115
  Transmission Date: 20180321
  Serious: No
  Sender: FDA-Public Use
  Company Number: US-009507513-1708USA009873

PATIENT
  Sex: Male
  Weight: 115.19 kg

DRUGS (1)
  1. ASMANEX HFA [Suspect]
     Active Substance: MOMETASONE FUROATE
     Indication: ASTHMA
     Dosage: 200 MICROGRAM (2 INHALATIONS) TWICE DAILY
     Route: 055
     Dates: start: 20170727

REACTIONS (4)
  - No adverse event [Unknown]
  - Product container issue [Unknown]
  - Product use issue [Unknown]
  - Drug dose omission [Unknown]

NARRATIVE: CASE EVENT DATE: 2017
